FAERS Safety Report 22336794 (Version 1)
Quarter: 2023Q2

REPORT INFORMATION
  Report Type: Spontaneous
  Country: US (occurrence: None)
  Receive Date: 20230517
  Receipt Date: 20230517
  Transmission Date: 20230722
  Serious: Yes (Life-Threatening)
  Sender: FDA-Public Use
  Company Number: None

PATIENT
  Age: 60 Year
  Sex: Female
  Weight: 171 kg

DRUGS (5)
  1. NOVOLIN NOS [Suspect]
     Active Substance: INSULIN HUMAN
     Indication: Drug therapy
     Dosage: OTHER STRENGTH : 70/30;?OTHER QUANTITY : 1 INJECTION(S);?FREQUENCY : TWICE A DAY;?OTHER ROUTE : INJE
     Route: 050
     Dates: start: 20230515
  2. NOVOLIN NOS [Concomitant]
     Active Substance: INSULIN HUMAN
  3. Abilif [Concomitant]
  4. PROZAC [Concomitant]
     Active Substance: FLUOXETINE HYDROCHLORIDE
  5. Gabepintin [Concomitant]

REACTIONS (3)
  - Bone disorder [None]
  - Asthenia [None]
  - Dysstasia [None]

NARRATIVE: CASE EVENT DATE: 20230516
